FAERS Safety Report 14621008 (Version 1)
Quarter: 2018Q1

REPORT INFORMATION
  Report Type: Spontaneous
  Country: US (occurrence: US)
  Receive Date: 20180309
  Receipt Date: 20180309
  Transmission Date: 20180509
  Serious: No
  Sender: FDA-Public Use
  Company Number: US-JNJFOC-20180228206

PATIENT
  Age: 51 Year
  Sex: Male
  Weight: 68.04 kg

DRUGS (2)
  1. MENS ROGAINE EXTRA STRENGTH [Suspect]
     Active Substance: MINOXIDIL
     Indication: ALOPECIA
     Dosage: 1/2 CAPFUL ON CROWN, BUT A LITTLE MORE ON RECEDING HAIRLINE AND BACK OF HEAD, 1-2 TIMES A DAY.
     Route: 061
  2. MENS ROGAINE EXTRA STRENGTH [Suspect]
     Active Substance: MINOXIDIL
     Indication: ALOPECIA
     Dosage: 1/2 CAPFUL ON CROWN, BUT A LITTLE MORE ON RECEDING HAIRLINE AND BACK OF HEAD, 1-2 TIMES A DAY.
     Route: 061

REACTIONS (5)
  - Product use in unapproved indication [Unknown]
  - Product administered at inappropriate site [Unknown]
  - Hair texture abnormal [Unknown]
  - Overdose [Unknown]
  - Inappropriate schedule of drug administration [Unknown]
